FAERS Safety Report 6376602-2 (Version None)
Quarter: 2009Q3

REPORT INFORMATION
  Report Type: 
  Country: None (occurrence: None)
  Receive Date: 20090925
  Receipt Date: 20090915
  Transmission Date: 20100115
  Serious: Yes (Hospitalization)
  Sender: FDA-Public Use
  Company Number: US-JNJFOC-20090904539

PATIENT
  Sex: Female

DRUGS (16)
  1. INFLIXIMAB [Suspect]
     Indication: RHEUMATOID ARTHRITIS
     Route: 042
     Dates: start: 20090303, end: 20090511
  2. LOVASTATIN [Concomitant]
  3. ACETAMINOPHEN AND CODEINE PHOSPHATE [Concomitant]
     Dosage: 300-30 MG, 1-2 PRN
  4. CARISOPRODOL [Concomitant]
  5. PREDNISONE [Concomitant]
  6. PREDNISONE [Concomitant]
  7. METHOTREXATE [Concomitant]
     Route: 048
  8. CELEBREX [Concomitant]
  9. FOSAMAX [Concomitant]
  10. TRIAMTERENE AND HYDROCHLOROTHIAZIDE [Concomitant]
     Dosage: 37.5-25 MG
  11. ATROVENT [Concomitant]
     Dosage: 18 MCG/ACT
     Route: 055
  12. BACTRIM [Concomitant]
     Dosage: 400-80 MG - M, W, F
  13. FOLIC ACID [Concomitant]
  14. LIDODERM [Concomitant]
     Dosage: 5% PTCH
  15. OXYCODONE HCL [Concomitant]
     Dosage: 5-10 MG
  16. WARFARIN SODIUM [Concomitant]

REACTIONS (2)
  - ASPERGILLOSIS [None]
  - INTERSTITIAL LUNG DISEASE [None]
